FAERS Safety Report 20829738 (Version 3)
Quarter: 2022Q2

REPORT INFORMATION
  Report Type: Spontaneous
  Country: CA (occurrence: CA)
  Receive Date: 20220513
  Receipt Date: 20220613
  Transmission Date: 20220721
  Serious: Yes (Other)
  Sender: FDA-Public Use
  Company Number: CA-ANIPHARMA-2022-CA-000882

PATIENT
  Age: 74 Year
  Sex: Male
  Weight: 86.18 kg

DRUGS (4)
  1. ATACAND [Suspect]
     Active Substance: CANDESARTAN CILEXETIL
     Indication: Hypertension
     Dosage: 2  MG HS
     Route: 048
     Dates: start: 202203, end: 202204
  2. ZINC [Concomitant]
     Active Substance: ZINC
     Dosage: EVERY 2 DAYS
     Route: 065
  3. VITAMIN D [Concomitant]
     Active Substance: VITAMIN D NOS
     Dosage: 600 IU DAILY
     Route: 065
  4. IRON\VITAMINS [Concomitant]
     Active Substance: IRON\VITAMINS
     Route: 065

REACTIONS (4)
  - Blood pressure abnormal [Recovered/Resolved]
  - Syncope [Recovered/Resolved]
  - Malaise [Recovered/Resolved]
  - Drug ineffective [Recovered/Resolved]

NARRATIVE: CASE EVENT DATE: 20220408
